FAERS Safety Report 6636745-2 (Version None)
Quarter: 2010Q1

REPORT INFORMATION
  Report Type: 
  Country: None (occurrence: None)
  Receive Date: 20100316
  Receipt Date: 20100305
  Transmission Date: 20100710
  Serious: Yes (Other)
  Sender: FDA-Public Use
  Company Number: US-JNJFOC-20100302695

PATIENT
  Age: 17 Year
  Sex: Male

DRUGS (5)
  1. INFLIXIMAB [Suspect]
     Indication: CROHN'S DISEASE
     Route: 042
  2. INFLIXIMAB [Suspect]
     Route: 042
  3. INFLIXIMAB [Suspect]
     Dosage: INDUCTION WEEK 0, 2, AND 6
     Route: 042
  4. ADALIMUMAB [Suspect]
     Indication: CROHN'S DISEASE
     Route: 058
  5. ADALIMUMAB [Suspect]
     Route: 058

REACTIONS (1)
  - DERMATITIS PSORIASIFORM [None]
